FAERS Safety Report 7632001-4 (Version None)
Quarter: 2011Q3

REPORT INFORMATION
  Report Type: 
  Country: None (occurrence: None)
  Receive Date: 20110725
  Receipt Date: 20110107
  Transmission Date: 20111222
  Serious: No
  Sender: FDA-Public Use
  Company Number: US-BRISTOL-MYERS SQUIBB COMPANY-11980059

PATIENT
  Age: 69 Year
  Sex: Female
  Weight: 82 kg

DRUGS (5)
  1. LOPRESSOR [Concomitant]
  2. COUMADIN [Suspect]
     Indication: AORTIC VALVE REPLACEMENT
     Dosage: DOSAGE: DECREASED TO 2.5MG DAILY
     Route: 048
     Dates: start: 19960101
  3. LASIX [Concomitant]
  4. DIOVAN [Concomitant]
  5. DIGOXIN [Concomitant]

REACTIONS (2)
  - INTERNATIONAL NORMALISED RATIO DECREASED [None]
  - HAEMORRHAGE [None]
